FAERS Safety Report 11783675 (Version 1)
Quarter: 2015Q4

REPORT INFORMATION
  Report Type: Spontaneous
  Country: IT (occurrence: IT)
  Receive Date: 20151127
  Receipt Date: 20151127
  Transmission Date: 20160305
  Serious: Yes (Other)
  Sender: FDA-Public Use
  Company Number: PHHY2015IT150740

PATIENT
  Age: 18 Month
  Sex: Male

DRUGS (1)
  1. AMOXICILLIN + CLAVULANATE POTASSIUM [Suspect]
     Active Substance: AMOXICILLIN\CLAVULANATE POTASSIUM
     Indication: COUGH
     Route: 065

REACTIONS (4)
  - Urticaria [Unknown]
  - Diarrhoea [Unknown]
  - Autism [Unknown]
  - Hypersensitivity [Unknown]
